FAERS Safety Report 4615777-X (Version None)
Quarter: 2005Q1

REPORT INFORMATION
  Report Type: 
  Country: None (occurrence: None)
  Receive Date: 20050317
  Receipt Date: 20050201
  Transmission Date: 20050727
  Serious: Yes (Death)
  Sender: FDA-Public Use
  Company Number: 2005S1000365

PATIENT
  Age: 39 Year
  Sex: Male

DRUGS (8)
  1. CLOZAPINE [Suspect]
     Indication: SCHIZOPHRENIA
     Dosage: 300 MG; BID; PO
     Route: 048
     Dates: start: 20041007
  2. CLONAZEPAM [Concomitant]
  3. FLUPHENAZINE [Concomitant]
  4. HYDROCHLORIDE [Concomitant]
  5. FLUPHENAZINE DECANOATE [Concomitant]
  6. LANSOPRAZOLE [Concomitant]
  7. METOCLOPRAMIDE [Concomitant]
  8. LISINOPRIL [Concomitant]

REACTIONS (1)
  - CARDIAC ARREST [None]
